FAERS Safety Report 4939572-7 (Version None)
Quarter: 2006Q1

REPORT INFORMATION
  Report Type: 
  Country: None (occurrence: None)
  Receive Date: 20060310
  Receipt Date: 20041210
  Transmission Date: 20060701
  Serious: Yes (Other)
  Sender: FDA-Public Use
  Company Number: 2004AP06217

PATIENT
  Age: 21007 Day
  Sex: Male
  Weight: 87 kg

DRUGS (3)
  1. IRESSA [Suspect]
     Indication: NON-SMALL CELL LUNG CANCER STAGE IV
     Route: 048
     Dates: start: 20041026, end: 20041118
  2. ACEDICONE [Concomitant]
     Indication: COUGH
     Route: 048
  3. SERTEIDE [Concomitant]
     Indication: DYSPNOEA
     Dosage: 50/500
     Route: 055

REACTIONS (2)
  - HEPATITIS A [None]
  - TRANSAMINASES INCREASED [None]
